FAERS Safety Report 9412926 (Version 1)
Quarter: 2013Q3

REPORT INFORMATION
  Report Type: Spontaneous
  Country: GB (occurrence: GB)
  Receive Date: 20130722
  Receipt Date: 20130722
  Transmission Date: 20140515
  Serious: Yes (Hospitalization)
  Sender: FDA-Public Use
  Company Number: GB-TEVA-419673ISR

PATIENT
  Age: 56 Year
  Sex: Female

DRUGS (7)
  1. FUROSEMIDE [Suspect]
     Route: 065
  2. FLUTICASONE PROPIONATE [Concomitant]
     Route: 065
  3. SALBUTAMOL [Concomitant]
     Route: 065
  4. OMEPRAZOLE [Concomitant]
     Route: 065
  5. SIMVASTATIN [Concomitant]
     Route: 065
  6. DILTIAZEM [Concomitant]
     Route: 065
  7. AMOXICILLIN [Concomitant]
     Route: 065

REACTIONS (1)
  - Metabolic alkalosis [Unknown]
